FAERS Safety Report 6444607-9 (Version None)
Quarter: 2009Q4

REPORT INFORMATION
  Report Type: 
  Country: None (occurrence: None)
  Receive Date: 20091110
  Receipt Date: 20090924
  Transmission Date: 20100525
  Serious: No
  Sender: FDA-Public Use
  Company Number: 1000009102

PATIENT
  Age: 45 Year
  Sex: Female

DRUGS (8)
  1. SAVELLA [Suspect]
     Indication: FIBROMYALGIA
     Dosage: 100 MG (50 MG, 2 IN 1 D), ORAL
     Route: 048
  2. PHENTERMINE [Concomitant]
  3. XANAX [Concomitant]
  4. LORTAB [Concomitant]
  5. YASMIN [Concomitant]
  6. CYCLOBENZAPRINE [Concomitant]
  7. ALLEGRA [Concomitant]
  8. AMBIEN [Concomitant]

REACTIONS (2)
  - BLOOD PRESSURE INCREASED [None]
  - NAUSEA [None]
